FAERS Safety Report 7090604-2 (Version None)
Quarter: 2010Q4

REPORT INFORMATION
  Report Type: 
  Country: None (occurrence: None)
  Receive Date: 20101109
  Receipt Date: 20080814
  Transmission Date: 20110411
  Serious: No
  Sender: FDA-Public Use
  Company Number: US-KINGPHARMUSA00001-K200800976

PATIENT
  Sex: Female
  Weight: 90.703 kg

DRUGS (2)
  1. EPIPEN [Suspect]
     Indication: ARTHROPOD STING
     Dosage: 0.3 MG, SINGLE, INTRAMUSCULAR
  2. EPIPEN [Suspect]
     Dosage: 0.3 MG, SINGLE, INTRAMUSCULAR

REACTIONS (2)
  - DRUG INEFFECTIVE [None]
  - EXPIRED DRUG ADMINISTERED [None]
